FAERS Safety Report 16855905 (Version 3)
Quarter: 2020Q1

REPORT INFORMATION
  Report Type: Report from Study
  Country: None (occurrence: BE)
  Receive Date: 20190926
  Receipt Date: 20200122
  Transmission Date: 20200409
  Serious: Yes (Hospitalization)
  Sender: FDA-Public Use
  Company Number: BE-ABBVIE-19P-013-2937883-00

PATIENT
  Age: 77 Year
  Sex: Male
  Weight: 73 kg

DRUGS (11)
  1. ENTYVIO [Concomitant]
     Active Substance: VEDOLIZUMAB
     Indication: COLITIS ULCERATIVE
     Route: 017
     Dates: start: 20160614
  2. STEOVIT [Concomitant]
     Active Substance: CALCIUM CARBONATE
     Route: 048
     Dates: start: 201802, end: 2019
  3. TRAZODONE [Concomitant]
     Active Substance: TRAZODONE HYDROCHLORIDE
     Indication: DEPRESSION
     Route: 048
     Dates: start: 2019, end: 2019
  4. SILDENAFYL [Concomitant]
     Indication: PROPHYLAXIS
     Route: 048
     Dates: start: 2015
  5. COLITOFALK [Concomitant]
     Active Substance: MESALAMINE
     Indication: COLITIS ULCERATIVE
     Dates: start: 1999
  6. ALENDRONAAT [Concomitant]
     Indication: OSTEOPOROSIS
     Route: 048
     Dates: start: 200711, end: 2019
  7. EZETROL [Concomitant]
     Active Substance: EZETIMIBE
     Indication: HYPERCHOLESTEROLAEMIA
     Route: 048
     Dates: start: 2017
  8. HUMIRA [Suspect]
     Active Substance: ADALIMUMAB
     Route: 058
     Dates: start: 20160519, end: 20160602
  9. HUMIRA [Suspect]
     Active Substance: ADALIMUMAB
     Indication: COLITIS ULCERATIVE
     Route: 058
     Dates: start: 20061208, end: 20160512
  10. PARACETAMOL [Concomitant]
     Active Substance: ACETAMINOPHEN
     Indication: COLITIS ULCERATIVE
     Route: 048
     Dates: start: 2003
  11. STEOVIT [Concomitant]
     Active Substance: CALCIUM CARBONATE
     Indication: COLITIS ULCERATIVE
     Route: 048
     Dates: start: 20160614, end: 20160816

REACTIONS (1)
  - Supraventricular extrasystoles [Recovered/Resolved]

NARRATIVE: CASE EVENT DATE: 201801
